FAERS Safety Report 7159957-0 (Version None)
Quarter: 2010Q4

REPORT INFORMATION
  Report Type: 
  Country: None (occurrence: None)
  Receive Date: 20101214
  Receipt Date: 20101208
  Transmission Date: 20110411
  Serious: Yes (Hospitalization, Other)
  Sender: FDA-Public Use
  Company Number: CA-ABBOTT-10P-028-0688989-00

PATIENT
  Sex: Male
  Weight: 97.61 kg

DRUGS (1)
  1. HUMIRA [Suspect]
     Indication: CROHN'S DISEASE
     Route: 058

REACTIONS (12)
  - ABDOMINAL PAIN [None]
  - ABSCESS [None]
  - CONDITION AGGRAVATED [None]
  - ENTEROCUTANEOUS FISTULA [None]
  - FISTULA [None]
  - FLATULENCE [None]
  - ILEAL FISTULA [None]
  - ILEAL STENOSIS [None]
  - INCREASED UPPER AIRWAY SECRETION [None]
  - POSTOPERATIVE WOUND INFECTION [None]
  - SIGMOIDITIS [None]
  - WOUND DRAINAGE [None]
